FAERS Safety Report 5758850-5 (Version None)
Quarter: 2008Q2

REPORT INFORMATION
  Report Type: 
  Country: None (occurrence: None)
  Receive Date: 20080603
  Receipt Date: 20080603
  Transmission Date: 20081010
  Serious: Yes (Hospitalization)
  Sender: FDA-Public Use
  Company Number: None

PATIENT
  Age: 49 Year
  Sex: Male

DRUGS (1)
  1. DIPYRIDAMOLE [Suspect]
     Indication: CARDIAC STRESS TEST
     Dosage: 60 MG ONCE IV
     Route: 042
     Dates: start: 20071010, end: 20071010

REACTIONS (3)
  - HEADACHE [None]
  - ILL-DEFINED DISORDER [None]
  - MUSCLE TIGHTNESS [None]
